FAERS Safety Report 7022475-4 (Version None)
Quarter: 2010Q3

REPORT INFORMATION
  Report Type: 
  Country: None (occurrence: None)
  Receive Date: 20100930
  Receipt Date: 20100920
  Transmission Date: 20110219
  Serious: Yes (Other)
  Sender: FDA-Public Use
  Company Number: US-ROCHE-728962

PATIENT
  Sex: Female

DRUGS (2)
  1. BEVACIZUMAB [Suspect]
     Dosage: STOPPED TREATMENT AFTER THREE CYCLES
     Route: 065
  2. TEMOZOLOMIDE [Suspect]
     Dosage: STOPPED TREATMENT AFTER THREE CYCLES
     Route: 065

REACTIONS (1)
  - DRUG TOXICITY [None]
